FAERS Safety Report 20837680 (Version 3)
Quarter: 2022Q3

REPORT INFORMATION
  Report Type: Report from Study
  Country: IT (occurrence: None)
  Receive Date: 20220517
  Receipt Date: 20220712
  Transmission Date: 20221026
  Serious: Yes (Hospitalization)
  Sender: FDA-Public Use
  Company Number: IT-ROCHE-3093277

PATIENT
  Age: 5 Year
  Sex: Female
  Weight: 15 kg

DRUGS (1)
  1. RISDIPLAM [Suspect]
     Active Substance: RISDIPLAM
     Indication: Spinal muscular atrophy
     Dosage: ON 04/MAY/2022, RECEIVED LAST DOSE PRIOR TO ADVERSE EVENT? LAST DOSE PRIOR TO ADVERSE EVENT: 08/JUN/
     Route: 048
     Dates: start: 20170206

REACTIONS (2)
  - Oesophagitis [Recovered/Resolved with Sequelae]
  - Oesophageal stenosis [Recovered/Resolved with Sequelae]

NARRATIVE: CASE EVENT DATE: 20220505
